FAERS Safety Report 20974639 (Version 1)
Quarter: 2022Q2

REPORT INFORMATION
  Report Type: Spontaneous
  Country: US (occurrence: None)
  Receive Date: 20220616
  Receipt Date: 20220616
  Transmission Date: 20220721
  Serious: Yes (Other)
  Sender: FDA-Public Use
  Company Number: None

PATIENT
  Age: 71 Year
  Sex: Male

DRUGS (3)
  1. CARVEDILOL [Suspect]
     Active Substance: CARVEDILOL
     Dosage: FREQUENCY : TWICE A DAY;?
     Dates: start: 20220223, end: 20220311
  2. DIVALPROEX SODIUM [Concomitant]
     Active Substance: DIVALPROEX SODIUM
  3. LURASIDONE [Concomitant]
     Active Substance: LURASIDONE

REACTIONS (3)
  - Dizziness [None]
  - Dyspnoea [None]
  - Bradycardia [None]

NARRATIVE: CASE EVENT DATE: 20220309
